FAERS Safety Report 11051878 (Version 1)
Quarter: 2015Q2

REPORT INFORMATION
  Report Type: Spontaneous
  Country: BR (occurrence: BR)
  Receive Date: 20150421
  Receipt Date: 20150421
  Transmission Date: 20150821
  Serious: Yes (Other)
  Sender: FDA-Public Use
  Company Number: BR-PFIZER INC-2014258106

PATIENT
  Age: 37 Year
  Sex: Male

DRUGS (3)
  1. PRISTIQ EXTENDED RELEASE [Suspect]
     Active Substance: DESVENLAFAXINE SUCCINATE
     Indication: PANIC DISORDER
  2. PRISTIQ EXTENDED RELEASE [Suspect]
     Active Substance: DESVENLAFAXINE SUCCINATE
     Indication: ANXIETY
     Dosage: 100 MG, 1X/DAY (IN THE MORNING)
     Route: 048
     Dates: start: 2009
  3. PRISTIQ EXTENDED RELEASE [Suspect]
     Active Substance: DESVENLAFAXINE SUCCINATE
     Indication: NERVOUSNESS
     Dosage: 50 MG, 1X/DAY (IN THE MORNING)
     Route: 048
     Dates: start: 2011

REACTIONS (15)
  - Dizziness [Not Recovered/Not Resolved]
  - Nervousness [Not Recovered/Not Resolved]
  - Anxiety [Not Recovered/Not Resolved]
  - Drug dependence [Unknown]
  - Tremor [Not Recovered/Not Resolved]
  - Aggression [Unknown]
  - Headache [Recovered/Resolved]
  - Malaise [Not Recovered/Not Resolved]
  - Onychophagia [Not Recovered/Not Resolved]
  - Visual acuity reduced [Unknown]
  - Agitation [Not Recovered/Not Resolved]
  - Hyperhidrosis [Unknown]
  - Intervertebral disc protrusion [Recovered/Resolved]
  - Labyrinthitis [Not Recovered/Not Resolved]
  - Stress [Unknown]

NARRATIVE: CASE EVENT DATE: 2011
